FAERS Safety Report 16441107 (Version 1)
Quarter: 2019Q2

REPORT INFORMATION
  Report Type: Report from Study
  Country: GR (occurrence: GR)
  Receive Date: 20190617
  Receipt Date: 20190617
  Transmission Date: 20190711
  Serious: Yes (Hospitalization)
  Sender: FDA-Public Use
  Company Number: GR-MYLANLABS-2019M1056692

PATIENT
  Age: 80 Year
  Sex: Male

DRUGS (14)
  1. ASSOPROL                           /00661203/ [Concomitant]
     Dosage: UNK
  2. LASIX [Concomitant]
     Active Substance: FUROSEMIDE
     Dosage: UNK
  3. INOSAMIN [Concomitant]
     Dosage: UNK
  4. GLIMEPIRIDE. [Suspect]
     Active Substance: GLIMEPIRIDE
     Indication: DIABETES MELLITUS
     Dosage: 1.5 DOSAGE FORM, BID (0.5 TAB/MORNING AND 1 TAB/EVENING)
     Route: 048
  5. GLUCOFREE [Concomitant]
     Dosage: UNK
  6. LEPUR [Concomitant]
     Active Substance: SIMVASTATIN
     Dosage: UNK
  7. COVERSYL AM [Concomitant]
     Active Substance: AMLODIPINE BESYLATE\PERINDOPRIL ERBUMINE
     Dosage: UNK
  8. TRAJENTA [Concomitant]
     Active Substance: LINAGLIPTIN
     Dosage: UNK
  9. SEROPRAM B [Concomitant]
     Active Substance: CHOLINE\CITALOPRAM HYDROBROMIDE
     Dosage: UNK
  10. ADENURIC [Concomitant]
     Active Substance: FEBUXOSTAT
     Dosage: UNK
  11. FENOBRAT [Concomitant]
     Dosage: UNK
  12. SALOSPIR [Concomitant]
     Active Substance: ASPIRIN
     Dosage: UNK
  13. DILATREND [Concomitant]
     Active Substance: CARVEDILOL
     Dosage: UNK
  14. OMNIC [Concomitant]
     Active Substance: TAMSULOSIN HYDROCHLORIDE
     Dosage: UNK

REACTIONS (2)
  - Diabetic gangrene [Unknown]
  - Limb injury [Unknown]
